FAERS Safety Report 9216558 (Version 1)
Quarter: 2013Q2

REPORT INFORMATION
  Report Type: Spontaneous
  Country: US (occurrence: US)
  Receive Date: 20130408
  Receipt Date: 20130408
  Transmission Date: 20140414
  Serious: No
  Sender: FDA-Public Use
  Company Number: US-BAYER-2013-041515

PATIENT
  Age: 20 Year
  Sex: Male

DRUGS (1)
  1. CLIMARA [Suspect]
     Dosage: UNK
     Dates: start: 200409

REACTIONS (2)
  - Blood testosterone decreased [None]
  - Accidental exposure to product [None]
